FAERS Safety Report 7081364-X (Version None)
Quarter: 2010Q4

REPORT INFORMATION
  Report Type: 
  Country: None (occurrence: None)
  Receive Date: 20101103
  Receipt Date: 20101028
  Transmission Date: 20110411
  Serious: Yes (Death, Other)
  Sender: FDA-Public Use
  Company Number: PHHY2010MX73366

PATIENT
  Sex: Female

DRUGS (1)
  1. DIOVAN HCT [Suspect]
     Indication: HYPERTENSION
     Dosage: 160/12.5 MG/DAY
     Dates: start: 20100407

REACTIONS (3)
  - ANAEMIA [None]
  - MYOCARDIAL INFARCTION [None]
  - RENAL FAILURE [None]
